FAERS Safety Report 12810364 (Version 1)
Quarter: 2016Q4

REPORT INFORMATION
  Report Type: Spontaneous
  Country: US (occurrence: US)
  Receive Date: 20161004
  Receipt Date: 20161004
  Transmission Date: 20170207
  Serious: Yes (Hospitalization)
  Sender: FDA-Public Use
  Company Number: None

PATIENT
  Age: 68 Year
  Sex: Male
  Weight: 125.55 kg

DRUGS (1)
  1. TADALAFIL [Suspect]
     Active Substance: TADALAFIL
     Dosage: IND EXEMPT; APPROVED PRODUCT

REACTIONS (5)
  - Oedema peripheral [None]
  - Wheezing [None]
  - Weight increased [None]
  - Productive cough [None]
  - Sputum discoloured [None]

NARRATIVE: CASE EVENT DATE: 20160926
